FAERS Safety Report 5383248-1 (Version None)
Quarter: 2007Q3

REPORT INFORMATION
  Report Type: 
  Country: None (occurrence: None)
  Receive Date: 20070705
  Receipt Date: 20070619
  Transmission Date: 20080115
  Serious: Yes (Death)
  Sender: FDA-Public Use
  Company Number: 2007JP001933

PATIENT
  Age: 76 Year
  Sex: Male

DRUGS (7)
  1. FUNGUARD(MICAFUNGIN) INJECTION [Suspect]
     Indication: PNEUMONIA
     Dosage: 150 MG, UID/QD, IV DRIP
     Route: 041
     Dates: start: 20070413, end: 20070502
  2. PENTCILLIN (PIPERACILLIN SODIUM) INJECTION [Concomitant]
  3. FLUMARIN (FLOMOXEF SODIUM) INJECTION [Concomitant]
  4. MINOCYCLINE HCL [Concomitant]
  5. FOY (GABEXATE MESILATE) INJECTION [Concomitant]
  6. GASTER INJECTION [Concomitant]
  7. ZANTAC (RANITIDINE HYDROCHLORIDE) INJECTION [Concomitant]

REACTIONS (3)
  - CEREBRAL INFARCTION [None]
  - DISEASE RECURRENCE [None]
  - WHITE BLOOD CELL COUNT INCREASED [None]
